FAERS Safety Report 6400733-1 (Version None)
Quarter: 2009Q4

REPORT INFORMATION
  Report Type: 
  Country: None (occurrence: None)
  Receive Date: 20091014
  Receipt Date: 20090929
  Transmission Date: 20100525
  Serious: Yes (Hospitalization)
  Sender: FDA-Public Use
  Company Number: FR-GENENTECH-291696

PATIENT
  Age: 57 Year
  Sex: Male

DRUGS (4)
  1. MABTHERA [Suspect]
     Indication: LYMPHOCYTIC LYMPHOMA
     Dosage: UNK
     Route: 042
     Dates: start: 20090325
  2. ENDOXAN [Suspect]
     Indication: LYMPHOCYTIC LYMPHOMA
     Dosage: 550 MG, UNK
     Route: 048
     Dates: start: 20090327
  3. FLUDARABINE PHOSPHATE [Suspect]
     Indication: LYMPHOCYTIC LYMPHOMA
     Dosage: 87.5 MG, UNK
     Route: 048
     Dates: start: 20090327
  4. BACTRIM DS [Concomitant]
     Indication: PROPHYLAXIS
     Dosage: UNK
     Dates: start: 20090330

REACTIONS (4)
  - PYREXIA [None]
  - RASH MACULO-PAPULAR [None]
  - STOMATITIS [None]
  - ULCERATIVE KERATITIS [None]
